FAERS Safety Report 18998947 (Version 1)
Quarter: 2021Q1

REPORT INFORMATION
  Report Type: Spontaneous
  Country: AR (occurrence: AR)
  Receive Date: 20210312
  Receipt Date: 20210312
  Transmission Date: 20210420
  Serious: Yes (Other)
  Sender: FDA-Public Use
  Company Number: AR-TEVA-2021-AR-1890359

PATIENT
  Age: 64 Year
  Sex: Female

DRUGS (2)
  1. HIDRENOX A [AMILORIDE;HYDROCHLOROTHIAZIDE] [Suspect]
     Active Substance: AMILORIDE HYDROCHLORIDE\HYDROCHLOROTHIAZIDE
     Dosage: AMILORIDE 5 MG HYDROCHLOROTHIAZIDE 50 MG
     Route: 065
     Dates: start: 20150717, end: 201602
  2. ASPIRIN. [Concomitant]
     Active Substance: ASPIRIN

REACTIONS (2)
  - Pemphigoid [Not Recovered/Not Resolved]
  - Skin lesion [Not Recovered/Not Resolved]

NARRATIVE: CASE EVENT DATE: 20150717
